FAERS Safety Report 5145732-5 (Version None)
Quarter: 2006Q4

REPORT INFORMATION
  Report Type: 
  Country: None (occurrence: None)
  Receive Date: 20060915
  Receipt Date: 20060302
  Transmission Date: 20070319
  Serious: Yes (Hospitalization)
  Sender: FDA-Public Use
  Company Number: 2006031307

PATIENT
  Age: 24 Month
  Sex: Male
  Weight: 14.5151 kg

DRUGS (1)
  1. GLIPIZIDE [Suspect]
     Indication: ACCIDENTAL EXPOSURE
     Dosage: 10 MG (1 D),ORAL
     Route: 048
     Dates: start: 20060228, end: 20060228

REACTIONS (3)
  - ACCIDENTAL EXPOSURE [None]
  - BLOOD GLUCOSE DECREASED [None]
  - PNEUMONIA [None]
